FAERS Safety Report 9305706 (Version 1)
Quarter: 2013Q2

REPORT INFORMATION
  Report Type: Spontaneous
  Country: US (occurrence: None)
  Receive Date: 20130522
  Receipt Date: 20130522
  Transmission Date: 20140414
  Serious: No
  Sender: FDA-Public Use
  Company Number: None

PATIENT
  Age: 86 Year
  Sex: Female

DRUGS (1)
  1. BOSULIF [Suspect]
     Dosage: 1 TAB
     Route: 048
     Dates: start: 20130516, end: 20130519

REACTIONS (3)
  - Diarrhoea [None]
  - Nausea [None]
  - Abdominal discomfort [None]
